FAERS Safety Report 12282367 (Version 1)
Quarter: 2016Q2

REPORT INFORMATION
  Report Type: Spontaneous
  Country: IN (occurrence: IN)
  Receive Date: 20160419
  Receipt Date: 20160419
  Transmission Date: 20160815
  Serious: Yes (Hospitalization)
  Sender: FDA-Public Use
  Company Number: IN-IMPAX LABORATORIES, INC-2016-IPXL-00410

PATIENT
  Age: 58 Year
  Sex: Male

DRUGS (1)
  1. PHENYTOIN CHEWABLE [Suspect]
     Active Substance: PHENYTOIN
     Indication: SEIZURE
     Dosage: 100 MG, BID
     Route: 065

REACTIONS (4)
  - Toxicity to various agents [Recovering/Resolving]
  - Depressed level of consciousness [Recovering/Resolving]
  - Pneumonia aspiration [Unknown]
  - Fall [Unknown]
